FAERS Safety Report 12118123 (Version 2)
Quarter: 2016Q1

REPORT INFORMATION
  Report Type: Spontaneous
  Country: US (occurrence: US)
  Receive Date: 20160226
  Receipt Date: 20160321
  Transmission Date: 20160526
  Serious: Yes (Life-Threatening, Hospitalization)
  Sender: FDA-Public Use
  Company Number: US-ACCORD-038293

PATIENT
  Age: 48 Year
  Sex: Female

DRUGS (5)
  1. MOXIFLOXACIN/MOXIFLOXACIN HYDROCHLORIDE [Suspect]
     Active Substance: MOXIFLOXACIN
     Indication: PNEUMONIA
     Route: 048
     Dates: end: 201504
  2. PIPERACILLIN/TAZOBACTAM [Concomitant]
     Indication: PNEUMONIA
  3. QUETIAPINE [Suspect]
     Active Substance: QUETIAPINE
     Indication: PRODUCT USED FOR UNKNOWN INDICATION
     Dates: end: 201504
  4. LISINOPRIL. [Concomitant]
     Active Substance: LISINOPRIL
  5. VANCOMYCIN [Concomitant]
     Active Substance: VANCOMYCIN
     Indication: PNEUMONIA

REACTIONS (6)
  - Hypertension [None]
  - Pneumonia [None]
  - Ventricular tachycardia [Recovered/Resolved]
  - Cardiac failure congestive [None]
  - Cardiac arrest [Unknown]
  - Coronary artery disease [None]

NARRATIVE: CASE EVENT DATE: 20150402
